FAERS Safety Report 22137615 (Version 4)
Quarter: 2024Q4

REPORT INFORMATION
  Report Type: Spontaneous
  Country: CA (occurrence: CA)
  Receive Date: 20230325
  Receipt Date: 20241115
  Transmission Date: 20250115
  Serious: Yes (Death)
  Sender: ROCHE
  Company Number: CA-ROCHE-3206510

PATIENT
  Age: 56 Year
  Sex: Male

DRUGS (7)
  1. RITUXIMAB [Suspect]
     Active Substance: RITUXIMAB
     Indication: Rheumatoid arthritis
     Route: 042
  2. RITUXIMAB [Suspect]
     Active Substance: RITUXIMAB
     Route: 042
  3. RITUXIMAB [Suspect]
     Active Substance: RITUXIMAB
     Route: 042
  4. RITUXIMAB [Suspect]
     Active Substance: RITUXIMAB
     Route: 042
  5. ACETAMINOPHEN [Concomitant]
     Active Substance: ACETAMINOPHEN
     Indication: Product used for unknown indication
     Route: 048
  6. DIPHENHYDRAMINE [Concomitant]
     Active Substance: DIPHENHYDRAMINE
     Indication: Product used for unknown indication
     Route: 048
  7. METHYLPREDNISOLONE [Concomitant]
     Active Substance: METHYLPREDNISOLONE
     Indication: Product used for unknown indication
     Route: 042

REACTIONS (14)
  - Arthralgia [Fatal]
  - Asthenia [Fatal]
  - Drug ineffective [Fatal]
  - Dyspnoea [Fatal]
  - Joint stiffness [Fatal]
  - Musculoskeletal stiffness [Fatal]
  - Myalgia [Fatal]
  - Nausea [Fatal]
  - Adrenal disorder [Fatal]
  - Appetite disorder [Fatal]
  - Fall [Fatal]
  - Lower limb fracture [Fatal]
  - Drug effect less than expected [Fatal]
  - Death [Fatal]
